FAERS Safety Report 7072742-3 (Version None)
Quarter: 2010Q4

REPORT INFORMATION
  Report Type: 
  Country: None (occurrence: None)
  Receive Date: 20101029
  Receipt Date: 20100305
  Transmission Date: 20110411
  Serious: No
  Sender: FDA-Public Use
  Company Number: A0848695A

PATIENT
  Age: 36 Year
  Sex: Male

DRUGS (4)
  1. ADVAIR DISKUS 100/50 [Suspect]
     Indication: WHEEZING
     Route: 055
     Dates: start: 20080301, end: 20100101
  2. VENTOLIN [Suspect]
     Indication: WHEEZING
     Dosage: 2PUFF AS REQUIRED
     Route: 055
     Dates: start: 20100101
  3. LEVAQUIN [Concomitant]
  4. SYMBICORT [Concomitant]

REACTIONS (2)
  - SLEEP DISORDER [None]
  - SNORING [None]
